FAERS Safety Report 5826834-4 (Version None)
Quarter: 2008Q3

REPORT INFORMATION
  Report Type: 
  Country: None (occurrence: None)
  Receive Date: 20080729
  Receipt Date: 20080729
  Transmission Date: 20090109
  Serious: Yes (Hospitalization)
  Sender: FDA-Public Use
  Company Number: None

PATIENT
  Age: 64 Year
  Sex: Female
  Weight: 78 kg

DRUGS (7)
  1. BEVACIZUMAB [Suspect]
     Indication: ANAPLASTIC ASTROCYTOMA
     Dosage: 10MG/KG IV QOW  CYCLE2 DAY 42
     Route: 042
     Dates: start: 20080418
  2. ERLOTINIB [Suspect]
     Indication: ANAPLASTIC ASTROCYTOMA
     Dosage: 200MG PO QD CYCLE2 DAY42
     Route: 048
     Dates: start: 20080418
  3. ATENOLOL [Concomitant]
  4. MINOCYCLINE HCL [Concomitant]
  5. TRAZODONE HCL [Concomitant]
  6. BENADRYL [Concomitant]
  7. XANAX [Concomitant]

REACTIONS (5)
  - BLOOD POTASSIUM DECREASED [None]
  - BLOOD SODIUM DECREASED [None]
  - DIARRHOEA [None]
  - NO THERAPEUTIC RESPONSE [None]
  - RASH [None]
